FAERS Safety Report 23354342 (Version 1)
Quarter: 2024Q1

REPORT INFORMATION
  Report Type: Spontaneous
  Country: FR (occurrence: FR)
  Receive Date: 20240101
  Receipt Date: 20240101
  Transmission Date: 20240409
  Serious: Yes (Life-Threatening, Other)
  Sender: FDA-Public Use
  Company Number: None

PATIENT
  Age: 71 Year
  Sex: Female
  Weight: 60 kg

DRUGS (7)
  1. ENOXAPARIN SODIUM [Suspect]
     Active Substance: ENOXAPARIN SODIUM
     Indication: Thrombosis prophylaxis
     Dosage: 4000 IU, QD (1D)
     Route: 048
     Dates: start: 20231005, end: 20231129
  2. ATENOLOL [Concomitant]
     Active Substance: ATENOLOL
  3. URAPIDIL HYDROCHLORIDE [Concomitant]
     Active Substance: URAPIDIL HYDROCHLORIDE
  4. ACETAMINOPHEN [Concomitant]
     Active Substance: ACETAMINOPHEN
  5. LANSOPRAZOLE [Concomitant]
     Active Substance: LANSOPRAZOLE
  6. LEVETIRACETAM [Concomitant]
     Active Substance: LEVETIRACETAM
  7. CLOBAZAM [Concomitant]
     Active Substance: CLOBAZAM

REACTIONS (2)
  - Status epilepticus [Recovered/Resolved]
  - Haematoma [Recovered/Resolved with Sequelae]

NARRATIVE: CASE EVENT DATE: 20231024
